FAERS Safety Report 6293876-7 (Version None)
Quarter: 2009Q3

REPORT INFORMATION
  Report Type: 
  Country: None (occurrence: None)
  Receive Date: 20090731
  Receipt Date: 20090731
  Transmission Date: 20100115
  Serious: Yes (Other)
  Sender: FDA-Public Use
  Company Number: None

PATIENT
  Sex: Female
  Weight: 58.9676 kg

DRUGS (1)
  1. LAMOTRIGINE [Suspect]
     Dosage: 200MG 1 1/2 TAB QAM 1/2 TAB QPM PO
     Route: 048
     Dates: start: 20080801, end: 20090410

REACTIONS (11)
  - ANXIETY [None]
  - BALANCE DISORDER [None]
  - COGNITIVE DISORDER [None]
  - DIZZINESS [None]
  - DYSPHORIA [None]
  - FALL [None]
  - IMPAIRED WORK ABILITY [None]
  - IRRITABILITY [None]
  - LOSS OF EMPLOYMENT [None]
  - NAUSEA [None]
  - PRODUCT SUBSTITUTION ISSUE [None]
